FAERS Safety Report 6264542-9 (Version None)
Quarter: 2009Q3

REPORT INFORMATION
  Report Type: 
  Country: None (occurrence: None)
  Receive Date: 20090710
  Receipt Date: 20090707
  Transmission Date: 20100115
  Serious: Yes (Hospitalization, Other)
  Sender: FDA-Public Use
  Company Number: FR-ROXANE LABORATORIES, INC.-2009-RO-00658RO

PATIENT
  Age: 66 Year
  Sex: Male

DRUGS (8)
  1. FLUTICASONE [Suspect]
     Indication: CHRONIC OBSTRUCTIVE PULMONARY DISEASE
     Dosage: 500 MCG
     Route: 055
  2. LOPINAVIR [Suspect]
     Indication: HIV INFECTION
  3. RITONAVIR [Suspect]
     Indication: HIV INFECTION
     Dosage: 200 MG
  4. INSULIN [Suspect]
     Indication: DIABETES MELLITUS
  5. STAVUDINE [Suspect]
     Indication: HIV INFECTION
  6. LAMIVUDINE [Suspect]
     Indication: HIV INFECTION
  7. SALMETEROL [Suspect]
     Indication: CUSHING'S SYNDROME
  8. HYDROCORTISONE [Suspect]
     Indication: CUSHING'S SYNDROME

REACTIONS (9)
  - CUSHING'S SYNDROME [None]
  - DEPRESSION [None]
  - DIABETES MELLITUS [None]
  - DRUG INTERACTION [None]
  - HYPERTENSION [None]
  - HYPOGLYCAEMIA [None]
  - KAPOSI'S SARCOMA [None]
  - OESOPHAGEAL CANDIDIASIS [None]
  - OSTEOPOROSIS [None]
